FAERS Safety Report 11161772 (Version 1)
Quarter: 2015Q2

REPORT INFORMATION
  Report Type: Spontaneous
  Country: US (occurrence: None)
  Receive Date: 20150603
  Receipt Date: 20150603
  Transmission Date: 20150821
  Serious: No
  Sender: FDA-Public Use
  Company Number: None

PATIENT
  Age: 42 Year
  Sex: Female

DRUGS (1)
  1. OTEZLA [Suspect]
     Active Substance: APREMILAST
     Indication: PSORIATIC ARTHROPATHY
     Dosage: 30MG TWICE DAILY ORAL
     Route: 048
     Dates: start: 201411

REACTIONS (6)
  - Nightmare [None]
  - Migraine [None]
  - Nausea [None]
  - Menopause [None]
  - Back pain [None]
  - Sleep disorder [None]

NARRATIVE: CASE EVENT DATE: 20150602
